FAERS Safety Report 6232274-9 (Version None)
Quarter: 2009Q2

REPORT INFORMATION
  Report Type: 
  Country: None (occurrence: None)
  Receive Date: 20090616
  Receipt Date: 20090616
  Transmission Date: 20091009
  Serious: No
  Sender: FDA-Public Use
  Company Number: None

PATIENT
  Sex: Female

DRUGS (2)
  1. ESTROPIPATE [Suspect]
     Indication: HYPERHIDROSIS
     Dosage: 1.5MG ONE DAILY P.O.
     Route: 048
     Dates: start: 20080101, end: 20090101
  2. ESTROPIPATE [Suspect]
     Indication: INSOMNIA
     Dosage: 1.5MG ONE DAILY P.O.
     Route: 048
     Dates: start: 20080101, end: 20090101

REACTIONS (3)
  - HYPERHIDROSIS [None]
  - INSOMNIA [None]
  - PRODUCT SUBSTITUTION ISSUE [None]
